FAERS Safety Report 8195186-X (Version None)
Quarter: 2012Q1

REPORT INFORMATION
  Report Type: 
  Country: None (occurrence: None)
  Receive Date: 20120308
  Receipt Date: 20111117
  Transmission Date: 20120608
  Serious: No
  Sender: FDA-Public Use
  Company Number: US-GLAXOSMITHKLINE-A0954354A

PATIENT
  Sex: Male

DRUGS (2)
  1. COMMIT [Suspect]
     Route: 002
  2. NICORETTE [Suspect]
     Route: 002

REACTIONS (2)
  - DENTAL CARIES [None]
  - SUPERINFECTION [None]
